FAERS Safety Report 4772500-6 (Version None)
Quarter: 2005Q3

REPORT INFORMATION
  Report Type: 
  Country: None (occurrence: None)
  Receive Date: 20050916
  Receipt Date: 20050916
  Transmission Date: 20060218
  Serious: No
  Sender: FDA-Public Use
  Company Number: None

PATIENT
  Age: 34 Year
  Sex: Female

DRUGS (1)
  1. SENSORCAINE [Suspect]
     Indication: CAESAREAN SECTION
     Dosage: SPINAL
     Dates: start: 20050817, end: 20050817

REACTIONS (4)
  - ANAESTHETIC COMPLICATION [None]
  - CAESAREAN SECTION [None]
  - INADEQUATE ANALGESIA [None]
  - PAIN [None]
